FAERS Safety Report 16680330 (Version 2)
Quarter: 2019Q3

REPORT INFORMATION
  Report Type: Spontaneous
  Country: MX (occurrence: MX)
  Receive Date: 20190807
  Receipt Date: 20190829
  Transmission Date: 20191004
  Serious: No
  Sender: FDA-Public Use
  Company Number: MX-PROVELL PHARMACEUTICALS-2072879

PATIENT
  Sex: Female

DRUGS (3)
  1. EUTHYROX [Suspect]
     Active Substance: LEVOTHYROXINE SODIUM
     Indication: HYPOTHYROIDISM
  2. LOSARTAN. [Concomitant]
     Active Substance: LOSARTAN
  3. MIDOLEN [Concomitant]

REACTIONS (7)
  - Dry skin [None]
  - Alopecia [None]
  - Fatigue [None]
  - Bone pain [None]
  - Memory impairment [None]
  - Renal pain [Recovered/Resolved]
  - Onychoclasis [None]
